FAERS Safety Report 11058560 (Version 1)
Quarter: 2015Q2

REPORT INFORMATION
  Report Type: Spontaneous
  Country: US (occurrence: None)
  Receive Date: 20150422
  Receipt Date: 20150422
  Transmission Date: 20150821
  Serious: Yes (Life-Threatening)
  Sender: FDA-Public Use
  Company Number: None

PATIENT
  Age: 56 Year
  Sex: Male
  Weight: 108.2 kg

DRUGS (4)
  1. MEPERIDINE [Suspect]
     Active Substance: MEPERIDINE
     Indication: PAIN
     Dosage: 50MG, PO
     Route: 048
     Dates: start: 20141126, end: 20141130
  2. MEPERIDINE [Suspect]
     Active Substance: MEPERIDINE
     Indication: HEADACHE
     Dosage: 50MG, PO
     Route: 048
     Dates: start: 20141126, end: 20141130
  3. TRAMADOL [Suspect]
     Active Substance: TRAMADOL
     Indication: HEADACHE
     Dosage: 50 MG, BID, PO
     Route: 048
     Dates: start: 20141112, end: 20141202
  4. TRAMADOL [Suspect]
     Active Substance: TRAMADOL
     Indication: PAIN
     Dosage: 50 MG, BID, PO
     Route: 048
     Dates: start: 20141112, end: 20141202

REACTIONS (3)
  - Serotonin syndrome [None]
  - Diarrhoea [None]
  - Drug interaction [None]

NARRATIVE: CASE EVENT DATE: 20141222
